FAERS Safety Report 9166919 (Version 1)
Quarter: 2013Q1

REPORT INFORMATION
  Report Type: Spontaneous
  Country: US (occurrence: US)
  Receive Date: 20130318
  Receipt Date: 20130318
  Transmission Date: 20140127
  Serious: Yes (Death, Other)
  Sender: FDA-Public Use
  Company Number: PHHY2013US025498

PATIENT
  Age: 80 Year
  Sex: Male

DRUGS (2)
  1. METHOTREXATE [Suspect]
     Indication: LYMPHOMA
     Dosage: 300?G/0.05ML BIWEEKLY FOR 1 MONTH
  2. METHOTREXATE [Suspect]
     Dosage: 300?G/0.05ML, WEEKLY FOR 1 MONTH

REACTIONS (4)
  - Non-Hodgkin^s lymphoma [Fatal]
  - Keratitis [Recovering/Resolving]
  - Toxicity to various agents [Unknown]
  - Lymphoma [Not Recovered/Not Resolved]
